FAERS Safety Report 4868112-6 (Version None)
Quarter: 2005Q4

REPORT INFORMATION
  Report Type: 
  Country: None (occurrence: None)
  Receive Date: 20051229
  Receipt Date: 20051221
  Transmission Date: 20060501
  Serious: Yes (Hospitalization, Disabling, Other)
  Sender: FDA-Public Use
  Company Number: PHBS2005ES18857

PATIENT
  Age: 59 Year
  Sex: Female

DRUGS (5)
  1. TAXOL [Concomitant]
     Dosage: 6 CYCLES
  2. ANASTROZOLE [Concomitant]
  3. ZOMETA [Suspect]
     Indication: METASTASES TO BONE
     Dosage: UNK, UNK
     Dates: start: 20031101, end: 20051101
  4. MEGESTROL ACETATE [Concomitant]
  5. FULVESTRANT [Concomitant]

REACTIONS (3)
  - DENTAL TREATMENT [None]
  - IMPAIRED HEALING [None]
  - OSTEONECROSIS [None]
